FAERS Safety Report 5307735-7 (Version None)
Quarter: 2007Q2

REPORT INFORMATION
  Report Type: 
  Country: None (occurrence: None)
  Receive Date: 20070418
  Receipt Date: 20070404
  Transmission Date: 20071010
  Serious: Yes (Hospitalization)
  Sender: FDA-Public Use
  Company Number: 2007RR-06775

PATIENT
  Age: 39 Year
  Sex: Male
  Weight: 85 kg

DRUGS (9)
  1. FUROSEMIDE [Suspect]
     Indication: INTRACRANIAL PRESSURE INCREASED
     Dosage: 20 MG
  2. PROPOFOL [Suspect]
     Indication: ANAESTHESIA
  3. MANNITOL [Suspect]
     Indication: DRUG USE FOR UNKNOWN INDICATION
     Dosage: SEE IMAGE
  4. ISOFLURANE [Concomitant]
  5. NITROUS OXIDE/ OXYGEN [Concomitant]
  6. FENTANYL [Concomitant]
  7. MIDAZOLAM HYDROCHLORIDE [Concomitant]
  8. PACURONIUM BROMIDE [Concomitant]
  9. SYNEPHRINE [Concomitant]

REACTIONS (12)
  - ABDOMINAL PAIN [None]
  - ACUTE HEPATIC FAILURE [None]
  - CHILLS [None]
  - COMA [None]
  - DEPRESSED LEVEL OF CONSCIOUSNESS [None]
  - FATIGUE [None]
  - HYPERVENTILATION [None]
  - INTRACRANIAL PRESSURE INCREASED [None]
  - JAUNDICE [None]
  - LIVER TRANSPLANT [None]
  - NAUSEA [None]
  - WEIGHT DECREASED [None]
